FAERS Safety Report 5730203-5 (Version None)
Quarter: 2008Q2

REPORT INFORMATION
  Report Type: 
  Country: None (occurrence: None)
  Receive Date: 20080505
  Receipt Date: 20080505
  Transmission Date: 20081010
  Serious: Yes (Hospitalization)
  Sender: FDA-Public Use
  Company Number: None

PATIENT
  Sex: Male
  Weight: 61 kg

DRUGS (7)
  1. TEMOZOLOMIDE [Suspect]
     Dosage: 3570 MG
  2. DIGOXIN [Concomitant]
  3. FUROSEMIDE [Concomitant]
  4. THEOPHYLLINE [Concomitant]
  5. CARBAMAZEPINE [Concomitant]
  6. COMPAZINE [Concomitant]
  7. DEXAMETHASONE TAB [Concomitant]

REACTIONS (9)
  - ANOREXIA [None]
  - ASTHENIA [None]
  - BRAIN NEOPLASM [None]
  - BRAIN OEDEMA [None]
  - CONDITION AGGRAVATED [None]
  - GAIT DISTURBANCE [None]
  - HYPOXIA [None]
  - NAUSEA [None]
  - VOMITING [None]
